FAERS Safety Report 8596418-6 (Version None)
Quarter: 2012Q3

REPORT INFORMATION
  Report Type: 
  Country: None (occurrence: None)
  Receive Date: 20120807
  Receipt Date: 20120807
  Transmission Date: 20120928
  Serious: Yes (Other)
  Sender: FDA-Public Use
  Company Number: None

PATIENT
  Sex: Female

DRUGS (2)
  1. RABEPRAZOLE SODIUM [Concomitant]
  2. QUININE, 300MG [Suspect]
     Indication: MUSCLE SPASMS
     Dosage: 300MG ONCE A DAY ORA
     Route: 048
     Dates: start: 20120712, end: 20120722

REACTIONS (3)
  - NAUSEA [None]
  - ABDOMINAL PAIN UPPER [None]
  - ASTHENIA [None]
